FAERS Safety Report 21742189 (Version 1)
Quarter: 2022Q4

REPORT INFORMATION
  Report Type: Spontaneous
  Country: DE (occurrence: DE)
  Receive Date: 20221216
  Receipt Date: 20221216
  Transmission Date: 20230112
  Serious: Yes (Other)
  Sender: FDA-Public Use
  Company Number: DE-BAYER-2022A164905

PATIENT
  Age: 35 Year
  Sex: Female
  Weight: 60 kg

DRUGS (1)
  1. KYLEENA [Suspect]
     Active Substance: LEVONORGESTREL
     Indication: Contraception
     Dosage: 17.5?G/DAY
     Route: 015
     Dates: start: 20220118

REACTIONS (4)
  - Pregnancy with contraceptive device [Not Recovered/Not Resolved]
  - Uterine haematoma [Not Recovered/Not Resolved]
  - Complication of pregnancy [None]
  - Drug ineffective [None]

NARRATIVE: CASE EVENT DATE: 20221122
